FAERS Safety Report 19392586 (Version 3)
Quarter: 2021Q3

REPORT INFORMATION
  Report Type: Spontaneous
  Country: FR (occurrence: FR)
  Receive Date: 20210608
  Receipt Date: 20210816
  Transmission Date: 20211014
  Serious: Yes (Other)
  Sender: FDA-Public Use
  Company Number: FR-JNJFOC-20210606231

PATIENT
  Age: 42 Year
  Sex: Male
  Weight: 76 kg

DRUGS (15)
  1. DERMOVAL [BETAMETHASONE] [Concomitant]
     Active Substance: BETAMETHASONE
     Route: 065
     Dates: start: 20170703
  2. XAMIOL [BETAMETHASONE DIPROPIONATE;CALCIPOTRIOL MONOHYDRATE] [Concomitant]
     Route: 065
     Dates: start: 20201221
  3. CLARELUX [Concomitant]
     Active Substance: CLOBETASOL PROPIONATE
     Dosage: LAST ADMINISTRATION DATE : 17?MAY?2021
     Route: 003
     Dates: start: 20191128
  4. CUTACNYL [Concomitant]
     Active Substance: BENZOYL PEROXIDE
     Route: 065
     Dates: start: 20131216
  5. TREMFYA [Suspect]
     Active Substance: GUSELKUMAB
     Indication: PSORIASIS
     Dosage: AT WEEK 0 AND 4 (LOADING DOSE)
     Route: 058
     Dates: start: 20201221
  6. DEXERYL [GLYCEROL;PARAFFIN, LIQUID;WHITE SOFT PARAFFIN] [Concomitant]
     Active Substance: GLYCERIN\MINERAL OIL\PETROLATUM
     Route: 065
     Dates: start: 20131216
  7. SEBIPROX [Concomitant]
     Active Substance: CICLOPIROX OLAMINE
     Route: 065
     Dates: start: 20131216
  8. ACIDE FOLIQUE [Concomitant]
     Active Substance: FOLIC ACID
  9. ATARAX [Concomitant]
     Active Substance: HYDROXYZINE HYDROCHLORIDE
     Route: 065
     Dates: start: 20140630
  10. DAIVOBET [Concomitant]
     Active Substance: BETAMETHASONE DIPROPIONATE\CALCIPOTRIENE
     Dosage: LAST ADMINISTRATION DATE : 17?MAY?2021
     Route: 003
     Dates: start: 20151207
  11. BETNEVAL [Concomitant]
     Active Substance: BETAMETHASONE VALERATE
     Route: 065
     Dates: start: 20140407
  12. TREMFYA [Suspect]
     Active Substance: GUSELKUMAB
     Route: 058
     Dates: start: 20210118, end: 20210517
  13. TREMFYA [Suspect]
     Active Substance: GUSELKUMAB
  14. ENSTILAR [Concomitant]
     Active Substance: BETAMETHASONE DIPROPIONATE\CALCIPOTRIENE HYDRATE
     Route: 003
     Dates: start: 20201221
  15. CLOBEX [CLOXACILLIN SODIUM] [Concomitant]
     Dosage: LAST ADMINISTRATION DATE : 17?MAY?2021
     Route: 003
     Dates: start: 20201221

REACTIONS (1)
  - COVID-19 [Recovered/Resolved]

NARRATIVE: CASE EVENT DATE: 20210115
